FAERS Safety Report 8542555-1 (Version None)
Quarter: 2012Q3

REPORT INFORMATION
  Report Type: 
  Country: None (occurrence: None)
  Receive Date: 20120726
  Receipt Date: 20120711
  Transmission Date: 20120928
  Serious: No
  Sender: FDA-Public Use
  Company Number: US-009507513-1207USA002814

PATIENT

DRUGS (1)
  1. CLARINEX [Suspect]
     Indication: ASTHMA
     Dosage: 1 DF, Q12H
     Route: 048
     Dates: start: 20111228

REACTIONS (3)
  - OVERDOSE [None]
  - NO ADVERSE EVENT [None]
  - DRUG PRESCRIBING ERROR [None]
